FAERS Safety Report 4343728-4 (Version None)
Quarter: 2004Q2

REPORT INFORMATION
  Report Type: 
  Country: None (occurrence: None)
  Receive Date: 20040422
  Receipt Date: 20040408
  Transmission Date: 20050107
  Serious: Yes (Hospitalization)
  Sender: FDA-Public Use
  Company Number: JP-BRISTOL-MYERS SQUIBB COMPANY-12566428

PATIENT
  Age: 37 Year
  Sex: Female

DRUGS (4)
  1. IFOSFAMIDE [Suspect]
     Indication: SYNOVIAL SARCOMA
     Route: 042
  2. ETOPOSIDE [Suspect]
     Indication: SYNOVIAL SARCOMA
     Route: 042
  3. CARBOPLATIN [Suspect]
     Indication: SYNOVIAL SARCOMA
     Route: 042
  4. DOXORUBICIN HCL [Concomitant]

REACTIONS (7)
  - ALOPECIA [None]
  - CYSTITIS HAEMORRHAGIC [None]
  - FATIGUE [None]
  - GASTROINTESTINAL DISORDER [None]
  - MUSCLE ATROPHY [None]
  - RETINAL PIGMENTATION [None]
  - SWELLING [None]
